FAERS Safety Report 6501406-7 (Version None)
Quarter: 2009Q4

REPORT INFORMATION
  Report Type: 
  Country: None (occurrence: None)
  Receive Date: 20091216
  Receipt Date: 20091208
  Transmission Date: 20100525
  Serious: Yes (Hospitalization, Other)
  Sender: FDA-Public Use
  Company Number: US-BAYER-200942269NA

PATIENT
  Age: 53 Year
  Sex: Female

DRUGS (1)
  1. YASMIN [Suspect]
     Indication: SKIN DEPIGMENTATION
     Dates: start: 20020101, end: 20090101

REACTIONS (5)
  - LOWER RESPIRATORY TRACT INFECTION [None]
  - PAIN [None]
  - PAINFUL RESPIRATION [None]
  - PELVIC VENOUS THROMBOSIS [None]
  - PULMONARY THROMBOSIS [None]
